FAERS Safety Report 20867254 (Version 1)
Quarter: 2022Q2

REPORT INFORMATION
  Report Type: Spontaneous
  Country: US (occurrence: US)
  Receive Date: 20220524
  Receipt Date: 20220524
  Transmission Date: 20220720
  Serious: Yes (Other)
  Sender: FDA-Public Use
  Company Number: US-SAGENT PHARMACEUTICALS-2022SAG001019

PATIENT
  Age: 50 Year
  Sex: Female

DRUGS (4)
  1. MELPHALAN HYDROCHLORIDE [Suspect]
     Active Substance: MELPHALAN HYDROCHLORIDE
     Indication: Diffuse large B-cell lymphoma
     Dosage: UNK
  2. CARMUSTINE [Suspect]
     Active Substance: CARMUSTINE
     Indication: Diffuse large B-cell lymphoma
     Dosage: UNK
  3. ETOPOSIDE [Suspect]
     Active Substance: ETOPOSIDE
     Indication: Diffuse large B-cell lymphoma
     Dosage: UNK
  4. CYTARABINE [Suspect]
     Active Substance: CYTARABINE
     Indication: Diffuse large B-cell lymphoma
     Dosage: UNK

REACTIONS (1)
  - Atrial fibrillation [Unknown]
